FAERS Safety Report 23415782 (Version 1)
Quarter: 2024Q1

REPORT INFORMATION
  Report Type: Report from Study
  Country: CO (occurrence: CO)
  Receive Date: 20240118
  Receipt Date: 20240118
  Transmission Date: 20240410
  Serious: Yes (Death, Life-Threatening, Hospitalization, Other)
  Sender: FDA-Public Use
  Company Number: CO-ABBVIE-5593573

PATIENT
  Age: 36 Year
  Sex: Male

DRUGS (2)
  1. VENCLEXTA [Suspect]
     Active Substance: VENETOCLAX
     Indication: Chronic lymphocytic leukaemia
     Dosage: 400 MILLIGRAM?FORM STRENGTH: 100 MILLIGRAM
     Route: 048
     Dates: start: 20230724, end: 20240113
  2. OBINUTUZUMAB [Concomitant]
     Active Substance: OBINUTUZUMAB
     Indication: Chronic lymphocytic leukaemia
     Dosage: UNKNOWN?FREQUENCY TEXT: UNKNOWN ?START DATE TEXT: UNKNOWN?DURATION TEXT: UNKNOWN
     Dates: end: 20240113

REACTIONS (9)
  - Hemiplegia [Fatal]
  - Respiratory disorder [Not Recovered/Not Resolved]
  - Nasal congestion [Not Recovered/Not Resolved]
  - Bacterial infection [Fatal]
  - Nervous system disorder [Fatal]
  - Movement disorder [Fatal]
  - Cough [Not Recovered/Not Resolved]
  - Chronic lymphocytic leukaemia [Fatal]
  - Dyspnoea [Not Recovered/Not Resolved]

NARRATIVE: CASE EVENT DATE: 20240101
